FAERS Safety Report 17109737 (Version 1)
Quarter: 2019Q4

REPORT INFORMATION
  Report Type: Spontaneous
  Country: US (occurrence: US)
  Receive Date: 20191107
  Receipt Date: 20191107
  Transmission Date: 20200122
  Serious: Yes (Life-Threatening)
  Sender: FDA-Public Use
  Company Number: None

PATIENT
  Age: 61 Year
  Sex: Female
  Weight: 58.97 kg

DRUGS (4)
  1. TROPICAMIDE OPHTHALMIC 5% [Suspect]
     Active Substance: TROPICAMIDE
     Indication: DIAGNOSTIC PROCEDURE
     Dosage: ?          QUANTITY:1 GTT DROP(S);?
     Route: 031
     Dates: end: 20191014
  2. FLUORESCEIN SODIUM AND BENOXINATE HYDROCHLORIDE [Suspect]
     Active Substance: BENOXINATE HYDROCHLORIDE\FLUORESCEIN SODIUM
  3. CRANBERRY. [Concomitant]
     Active Substance: CRANBERRY
  4. VITAMIN C [Concomitant]
     Active Substance: ASCORBIC ACID

REACTIONS (15)
  - Hypotension [None]
  - Abdominal pain upper [None]
  - Confusional state [None]
  - Feeling hot [None]
  - Nervous system disorder [None]
  - Dysarthria [None]
  - Blood glucose decreased [None]
  - Headache [None]
  - Syncope [None]
  - Nausea [None]
  - Lower respiratory tract congestion [None]
  - Heart rate increased [None]
  - Somnolence [None]
  - Fatigue [None]
  - Dyspnoea [None]

NARRATIVE: CASE EVENT DATE: 20191014
